FAERS Safety Report 19508667 (Version 1)
Quarter: 2021Q3

REPORT INFORMATION
  Report Type: Report from Study
  Country: None (occurrence: TT)
  Receive Date: 20210709
  Receipt Date: 20210709
  Transmission Date: 20211014
  Serious: Yes (Death)
  Sender: FDA-Public Use
  Company Number: TT-ABBVIE-21K-159-3983774-00

PATIENT

DRUGS (1)
  1. IMBRUVICA [Suspect]
     Active Substance: IBRUTINIB
     Indication: MANTLE CELL LYMPHOMA
     Route: 048
     Dates: start: 202009

REACTIONS (2)
  - Cardiac disorder [Fatal]
  - Embolism [Fatal]

NARRATIVE: CASE EVENT DATE: 202009
